FAERS Safety Report 17421602 (Version 1)
Quarter: 2020Q1

REPORT INFORMATION
  Report Type: Spontaneous
  Country: US (occurrence: US)
  Receive Date: 20200214
  Receipt Date: 20200214
  Transmission Date: 20200409
  Serious: Yes (Other)
  Sender: FDA-Public Use
  Company Number: US-GEHC-2020CSU000641

PATIENT
  Age: 42 Year
  Sex: Male

DRUGS (3)
  1. OMNIPAQUE [Suspect]
     Active Substance: IOHEXOL
     Indication: DIAGNOSTIC PROCEDURE
     Dosage: 1050 ML, SINGLE
     Route: 042
     Dates: start: 20120608, end: 20120608
  2. OMNIPAQUE [Suspect]
     Active Substance: IOHEXOL
     Indication: FEELING ABNORMAL
  3. OMNIPAQUE [Suspect]
     Active Substance: IOHEXOL
     Indication: THROMBOSIS

REACTIONS (7)
  - Palpitations [Unknown]
  - Anxiety [Not Recovered/Not Resolved]
  - Blood pressure increased [Unknown]
  - Visual field defect [Unknown]
  - Hypoaesthesia [Unknown]
  - Vision blurred [Unknown]
  - Extra dose administered [Recovered/Resolved]

NARRATIVE: CASE EVENT DATE: 20120608
